FAERS Safety Report 22606467 (Version 1)
Quarter: 2023Q2

REPORT INFORMATION
  Report Type: Spontaneous
  Country: CH (occurrence: CH)
  Receive Date: 20230615
  Receipt Date: 20230615
  Transmission Date: 20230722
  Serious: Yes (Other)
  Sender: FDA-Public Use
  Company Number: None

PATIENT
  Age: 44 Year
  Sex: Male

DRUGS (22)
  1. EZETIMIBE\SIMVASTATIN [Suspect]
     Active Substance: EZETIMIBE\SIMVASTATIN
     Dosage: EXACT DATE OF INTRODUCTION NOT REPORTED, FIRST DESCRIBED ON 21.03.2023
     Route: 048
     Dates: end: 20230403
  2. EZETIMIBE [Suspect]
     Active Substance: EZETIMIBE
     Dosage: EXACT DATE OF INTRODUCTION NOT REPORTED, FIRST DESCRIBED ON 21.03.2023
     Route: 048
     Dates: start: 20230404, end: 20230411
  3. FEBUXOSTAT [Suspect]
     Active Substance: FEBUXOSTAT
     Dosage: 40 MILLIGRAM, QD
     Dates: start: 20230323, end: 20230410
  4. COLCHICINE [Suspect]
     Active Substance: COLCHICINE
     Dosage: 0,5 MG 1X/DAY THEN  2X/DAY
     Route: 048
     Dates: start: 2016, end: 20230411
  5. AMLODIPINE [Suspect]
     Active Substance: AMLODIPINE BESYLATE
     Dosage: 10 MILLIGRAM, QD
     Dates: start: 20230318, end: 20230318
  6. HYDROCHLOROTHIAZIDE [Suspect]
     Active Substance: HYDROCHLOROTHIAZIDE
     Dosage: IN TOTAL
     Dates: start: 20230318, end: 20230318
  7. BUPRENORPHINE HYDROCHLORIDE [Suspect]
     Active Substance: BUPRENORPHINE HYDROCHLORIDE
     Dosage: 0.2 MG 3X DAILY
     Dates: start: 20230409, end: 20230412
  8. MORPHINE HYDROCHLORIDE [Suspect]
     Active Substance: MORPHINE HYDROCHLORIDE
     Dosage: UNK
     Dates: start: 20230404, end: 20230409
  9. DAFALGAN [Suspect]
     Active Substance: ACETAMINOPHEN
     Dosage: MAX 1000 MG, 3X/DAY ; AS NECESSARY
     Dates: end: 20230411
  10. HEPARIN SODIUM [Suspect]
     Active Substance: HEPARIN SODIUM
     Dosage: UNK
     Dates: start: 202303, end: 20230404
  11. PREDNISONE [Concomitant]
     Active Substance: PREDNISONE
     Dosage: 25 MG 1X/DAY, 25 MG IN 22.03, 20 MG IN 23.03, 15 MG IN 24.03, 10 MG IN 25.03, 5 MG IN 26.03
     Dates: end: 20230327
  12. VALSARTAN [Concomitant]
     Active Substance: VALSARTAN
     Dosage: UNK
     Dates: start: 20230315, end: 20230320
  13. SINTROM [Concomitant]
     Active Substance: ACENOCOUMAROL
     Dosage: UNK
  14. ENOXAPARIN SODIUM [Concomitant]
     Active Substance: ENOXAPARIN SODIUM
     Dosage: UNK
  15. EDARBI [Concomitant]
     Active Substance: AZILSARTAN KAMEDOXOMIL
     Dosage: UNK
  16. EDARBYCLOR [Concomitant]
     Active Substance: AZILSARTAN KAMEDOXOMIL\CHLORTHALIDONE
     Dosage: UNK
  17. RENVELA [Concomitant]
     Active Substance: SEVELAMER CARBONATE
     Dosage: UNK
  18. DAPAGLIFLOZIN [Concomitant]
     Active Substance: DAPAGLIFLOZIN
     Dosage: UNK
  19. ESOMEPRAZOLE MAGNESIUM [Concomitant]
     Active Substance: ESOMEPRAZOLE MAGNESIUM
     Dosage: UNK
  20. EUTHYROX [Concomitant]
     Active Substance: LEVOTHYROXINE SODIUM
     Dosage: UNK
  21. SIMVASTATIN [Concomitant]
     Active Substance: SIMVASTATIN
     Dosage: UNK
     Dates: start: 20230404
  22. TRAMADOL [Concomitant]
     Active Substance: TRAMADOL
     Dosage: UNK
     Dates: end: 20230404

REACTIONS (1)
  - Cholestatic liver injury [Recovered/Resolved]

NARRATIVE: CASE EVENT DATE: 20230411
